FAERS Safety Report 4582609-8 (Version None)
Quarter: 2005Q1

REPORT INFORMATION
  Report Type: 
  Country: None (occurrence: None)
  Receive Date: 20050215
  Receipt Date: 20050208
  Transmission Date: 20050727
  Serious: Yes (Other)
  Sender: FDA-Public Use
  Company Number: PHBS2005IE01987

PATIENT
  Age: 28 Year
  Sex: Female

DRUGS (3)
  1. TEGRETOL [Suspect]
     Dosage: 400 MG/DAY
     Route: 048
  2. HERBAL PREPARATION [Suspect]
     Indication: CONTRACEPTION
     Route: 065
  3. ETHINYL ESTRADIOL TAB [Suspect]
     Indication: PREMENSTRUAL SYNDROME
     Route: 065

REACTIONS (2)
  - DRUG INTERACTION [None]
  - UNINTENDED PREGNANCY [None]
